FAERS Safety Report 12967404 (Version 1)
Quarter: 2016Q4

REPORT INFORMATION
  Report Type: Spontaneous
  Country: FI (occurrence: FI)
  Receive Date: 20161123
  Receipt Date: 20161123
  Transmission Date: 20170207
  Serious: Yes (Disabling, Other)
  Sender: FDA-Public Use
  Company Number: FI-ROCHE-1855586

PATIENT
  Age: 71 Year
  Sex: Male

DRUGS (17)
  1. RAMIPRIL ACTAVIS [Concomitant]
     Active Substance: RAMIPRIL
     Indication: BLOOD PRESSURE MEASUREMENT
     Route: 048
     Dates: start: 20120101
  2. SOLU-CORTEF [Concomitant]
     Active Substance: HYDROCORTISONE SODIUM SUCCINATE
     Dosage: IN ASSOCIATION WITH MABTHERA INFUSION
     Route: 065
     Dates: start: 20151013, end: 20160329
  3. LEVACT (FINLAND) [Concomitant]
     Active Substance: BENDAMUSTINE HYDROCHLORIDE
     Indication: CHRONIC LYMPHOCYTIC LEUKAEMIA
     Route: 042
     Dates: start: 20151104, end: 20160329
  4. WELLVONE [Concomitant]
     Active Substance: ATOVAQUONE
     Dosage: INDICATION: PROFYLAXIS FOR TOXOPLASMA ONE WEEK PRIOR TO CYTOTOXIC DRUG
     Route: 048
     Dates: start: 20150807
  5. APURIN SANDOZ [Concomitant]
     Active Substance: ALLOPURINOL
     Indication: GOUT
     Route: 048
     Dates: start: 20151009, end: 20160329
  6. PANADOL FORTE [Concomitant]
     Active Substance: ACETAMINOPHEN\CAFFEINE
     Dosage: INDICATION: IN ASSOCIATION WITH MABTHERA INFUSION
     Route: 048
     Dates: start: 20151013
  7. PRIVIGEN [Concomitant]
     Active Substance: HUMAN IMMUNOGLOBULIN G
     Dosage: INDICATION: GAMMAGLOBULIN REPLACEMENT THERAPY PRIOR TO CLL CYTOTOXIC DRUG
     Route: 042
     Dates: start: 20150813, end: 20160329
  8. SIMVASTATIN ACTAVIS [Concomitant]
     Active Substance: SIMVASTATIN
     Indication: HYPERCHOLESTEROLAEMIA
     Route: 048
     Dates: start: 20120101
  9. MABTHERA [Suspect]
     Active Substance: RITUXIMAB
     Route: 042
     Dates: start: 20160112, end: 20160112
  10. THYROXIN [Concomitant]
     Active Substance: LEVOTHYROXINE
     Indication: HYPOTHYROIDISM
     Route: 048
     Dates: start: 20130424
  11. MABTHERA [Suspect]
     Active Substance: RITUXIMAB
     Indication: CHRONIC LYMPHOCYTIC LEUKAEMIA
     Route: 042
     Dates: start: 20151013, end: 20160112
  12. LARIAM [Suspect]
     Active Substance: MEFLOQUINE HYDROCHLORIDE
     Indication: PROGRESSIVE MULTIFOCAL LEUKOENCEPHALOPATHY
     Dosage: LATER CONTINUED WITH 250MG PER WEEK.
     Route: 065
     Dates: start: 20160921
  13. NEULASTA [Concomitant]
     Active Substance: PEGFILGRASTIM
     Indication: CYTOPENIA
     Route: 042
     Dates: start: 20151012, end: 20160329
  14. METFOREM [Concomitant]
     Active Substance: METFORMIN HYDROCHLORIDE
     Indication: TYPE 2 DIABETES MELLITUS
     Route: 048
     Dates: start: 20150807, end: 20160831
  15. MABTHERA [Suspect]
     Active Substance: RITUXIMAB
     Route: 042
     Dates: start: 20151201, end: 20151201
  16. EMCONCOR [Concomitant]
     Active Substance: BISOPROLOL FUMARATE
     Dosage: INDICATION: HEART MEDICINE
     Route: 048
     Dates: start: 20120101
  17. HISTEC [Concomitant]
     Active Substance: CETIRIZINE HYDROCHLORIDE
     Dosage: IN ASSOCIATION WITH MABTHERA INFUSION
     Route: 048
     Dates: start: 20151013, end: 20160329

REACTIONS (3)
  - Off label use [Unknown]
  - Progressive multifocal leukoencephalopathy [Not Recovered/Not Resolved]
  - Product use issue [Unknown]

NARRATIVE: CASE EVENT DATE: 20160705
